FAERS Safety Report 16376860 (Version 1)
Quarter: 2019Q3

REPORT INFORMATION
  Report Type: Spontaneous
  Country: US (occurrence: US)
  Receive Date: 20190530
  Receipt Date: 20190530
  Transmission Date: 20191004
  Serious: Yes (Hospitalization)
  Sender: FDA-Public Use
  Company Number: None

PATIENT
  Age: 46 Year
  Sex: Female

DRUGS (22)
  1. DICOFENAC [Concomitant]
  2. FLOVENT HFA [Concomitant]
     Active Substance: FLUTICASONE PROPIONATE
  3. HYDROXYZINE [Concomitant]
     Active Substance: HYDROXYZINE HYDROCHLORIDE
  4. SULFASALAZINE DELAYED-RELEASE [Concomitant]
     Active Substance: SULFASALAZINE
  5. HUMIRA [Suspect]
     Active Substance: ADALIMUMAB
     Indication: CROHN^S DISEASE
     Dosage: ?          OTHER FREQUENCY:QWK;?
     Route: 058
  6. CYMABALTA [Concomitant]
  7. HYDROCHLOROT [Concomitant]
     Active Substance: HYDROCHLOROTHIAZIDE
  8. IMURAN [Concomitant]
     Active Substance: AZATHIOPRINE
  9. ATORVASTATIN [Concomitant]
     Active Substance: ATORVASTATIN
  10. FOLIC ACID. [Concomitant]
     Active Substance: FOLIC ACID
  11. MULTI VIT [Concomitant]
     Active Substance: VITAMINS
  12. AMITRIPTYLIN [Concomitant]
     Active Substance: AMITRIPTYLINE
  13. ASPIRIN. [Concomitant]
     Active Substance: ASPIRIN
  14. LEVOTHYROXIN [Concomitant]
     Active Substance: LEVOTHYROXINE
  15. LISINOPRIL. [Concomitant]
     Active Substance: LISINOPRIL
  16. METFORMIN [Concomitant]
     Active Substance: METFORMIN HYDROCHLORIDE
  17. PERCOCET [Concomitant]
     Active Substance: ACETAMINOPHEN\OXYCODONE HYDROCHLORIDE
  18. VIT D [Concomitant]
     Active Substance: VITAMIN D NOS
  19. ZOFRAN [Concomitant]
     Active Substance: ONDANSETRON HYDROCHLORIDE
  20. PANTOPRAZOLE [Concomitant]
     Active Substance: PANTOPRAZOLE
  21. ALBUTEROL. [Concomitant]
     Active Substance: ALBUTEROL
  22. TYLENOL ARTH [Concomitant]

REACTIONS (2)
  - Kidney infection [None]
  - Sepsis [None]
